FAERS Safety Report 9264883 (Version 1)
Quarter: 2013Q2

REPORT INFORMATION
  Report Type: Spontaneous
  Country: US (occurrence: None)
  Receive Date: 20130430
  Receipt Date: 20130430
  Transmission Date: 20140414
  Serious: Yes (Death, Life-Threatening, Hospitalization, Disabling, Congenital Anomaly, Other)
  Sender: FDA-Public Use
  Company Number: None

PATIENT
  Age: 72 Year
  Sex: Female
  Weight: 113.4 kg

DRUGS (2)
  1. METFORMIN [Suspect]
     Indication: TYPE 2 DIABETES MELLITUS
     Dosage: 1000 MG  2X DAILY  PO
     Route: 048
     Dates: start: 20120305, end: 20120310
  2. METFORMIN [Suspect]
     Indication: TYPE 2 DIABETES MELLITUS
     Dosage: 1000 MG  2X DAILY  PO
     Route: 048
     Dates: start: 20120507, end: 20120512

REACTIONS (3)
  - Diarrhoea [None]
  - Abdominal discomfort [None]
  - Product quality issue [None]
